FAERS Safety Report 25961859 (Version 2)
Quarter: 2025Q4

REPORT INFORMATION
  Report Type: Spontaneous
  Country: EU (occurrence: EU)
  Receive Date: 20251027
  Receipt Date: 20251113
  Transmission Date: 20260117
  Serious: Yes (Other)
  Sender: AUROBINDO
  Company Number: EU-AUROBINDO-AUR-APL-2025-053881

PATIENT
  Age: 3 Decade
  Sex: Male

DRUGS (1)
  1. TRAMADOL [Suspect]
     Active Substance: TRAMADOL
     Indication: Product used for unknown indication
     Dosage: UNK (UP TO 500 MG/DAY)
     Route: 065

REACTIONS (3)
  - Intentional product misuse [Unknown]
  - Drug abuse [Unknown]
  - Overdose [Unknown]
